FAERS Safety Report 5604146-1 (Version None)
Quarter: 2008Q1

REPORT INFORMATION
  Report Type: 
  Country: None (occurrence: None)
  Receive Date: 20080123
  Receipt Date: 20080123
  Transmission Date: 20080703
  Serious: Yes (Hospitalization)
  Sender: FDA-Public Use
  Company Number: None

PATIENT
  Age: 6 Year
  Sex: Male

DRUGS (1)
  1. RISPERDAL [Suspect]
     Indication: ANGER
     Dosage: PO
     Route: 048
     Dates: start: 20040101, end: 20050101

REACTIONS (1)
  - CONVULSION [None]
